FAERS Safety Report 14986171 (Version 2)
Quarter: 2018Q2

REPORT INFORMATION
  Report Type: Report from Study
  Country: None (occurrence: IE)
  Receive Date: 20180607
  Receipt Date: 20180615
  Transmission Date: 20180711
  Serious: Yes (Death, Other)
  Sender: FDA-Public Use
  Company Number: IE-ABBVIE-18K-229-2379725-00

PATIENT
  Age: 61 Year
  Sex: Male

DRUGS (1)
  1. VENCLYXTO [Suspect]
     Active Substance: VENETOCLAX
     Indication: CHRONIC LYMPHOCYTIC LEUKAEMIA
     Route: 048
     Dates: start: 20170817, end: 20180521

REACTIONS (2)
  - Chronic lymphocytic leukaemia [Fatal]
  - Richter^s syndrome [Unknown]

NARRATIVE: CASE EVENT DATE: 20180512
